FAERS Safety Report 12739351 (Version 1)
Quarter: 2016Q3

REPORT INFORMATION
  Report Type: Report from Study
  Country: DE (occurrence: DE)
  Receive Date: 20160913
  Receipt Date: 20160913
  Transmission Date: 20161109
  Serious: Yes (Hospitalization)
  Sender: FDA-Public Use
  Company Number: PHHO2015DE013058

PATIENT
  Age: 58 Year
  Sex: Male
  Weight: 86 kg

DRUGS (4)
  1. MYCOPHENOLATE MOFETIL. [Suspect]
     Active Substance: MYCOPHENOLATE MOFETIL
     Indication: RENAL TRANSPLANT
     Dosage: 250 MG, TID
     Route: 048
     Dates: start: 20150520
  2. TACROLIMUS. [Suspect]
     Active Substance: TACROLIMUS
     Indication: RENAL TRANSPLANT
     Dosage: 6 MG, QD
     Route: 048
     Dates: start: 20150520
  3. PREDNISOLONE. [Suspect]
     Active Substance: PREDNISOLONE
     Indication: RENAL TRANSPLANT
     Dosage: 5 MG, QD
     Route: 048
     Dates: start: 20150522
  4. NO TREATMENT RECEIVED [Suspect]
     Active Substance: UNSPECIFIED INGREDIENT
     Indication: RENAL TRANSPLANT
     Dosage: NO TREATMENT
     Route: 065

REACTIONS (6)
  - Lung adenocarcinoma metastatic [Not Recovered/Not Resolved]
  - Thrombosis [Not Recovered/Not Resolved]
  - Benign pancreatic neoplasm [Not Recovered/Not Resolved]
  - Oesophageal adenocarcinoma metastatic [Recovering/Resolving]
  - Oesophageal adenocarcinoma [Not Recovered/Not Resolved]
  - Adenocarcinoma [Not Recovered/Not Resolved]

NARRATIVE: CASE EVENT DATE: 20150507
